FAERS Safety Report 9765807 (Version 1)
Quarter: 2013Q4

REPORT INFORMATION
  Report Type: Spontaneous
  Country: US (occurrence: US)
  Receive Date: 20131217
  Receipt Date: 20131217
  Transmission Date: 20140711
  Serious: No
  Sender: FDA-Public Use
  Company Number: US-GLAXOSMITHKLINE-A1011742A

PATIENT
  Age: 57 Year
  Sex: Male

DRUGS (4)
  1. VOTRIENT [Suspect]
     Indication: RENAL CELL CARCINOMA
     Dates: start: 20120720
  2. AFINITOR [Concomitant]
  3. AMTURNIDE [Concomitant]
  4. PRILOSEC [Concomitant]

REACTIONS (1)
  - Drug ineffective [Unknown]
